FAERS Safety Report 9228122 (Version 1)
Quarter: 2013Q1

REPORT INFORMATION
  Report Type: Spontaneous
  Country: US (occurrence: None)
  Receive Date: 20121012
  Receipt Date: 20121012
  Transmission Date: 20140127
  Serious: Yes (Other)
  Sender: FDA-Public Use
  Company Number: 2012SP020120

PATIENT
  Age: 68 Year
  Sex: Male

DRUGS (3)
  1. TEMODAR (TEMOZOLOMIDE) CAPSULE [Suspect]
     Indication: GLIOBLASTOMA MULTIFORME
     Route: 048
     Dates: start: 201202, end: 201203
  2. SEPTRA (SULFAMETHOXAZOLE, TRIMETHOPRIM) [Concomitant]
  3. KEPRA (LEVETIRACETAM) [Concomitant]

REACTIONS (1)
  - Pancytopenia [None]
